FAERS Safety Report 8058417-2 (Version None)
Quarter: 2012Q1

REPORT INFORMATION
  Report Type: 
  Country: None (occurrence: None)
  Receive Date: 20120106
  Receipt Date: 20111223
  Transmission Date: 20120608
  Serious: Yes (Death)
  Sender: FDA-Public Use
  Company Number: 2011110060

PATIENT
  Age: 86 Year
  Sex: Female

DRUGS (19)
  1. POTASSIUM CHLORIDE [Suspect]
     Indication: HYPOKALAEMIA
     Dosage: 2 DOSAGE FORMS (1 DOSAGE FORMS, 2 IN 1 D), ORAL
     Route: 048
     Dates: start: 20110826, end: 20110909
  2. PROCTOGLYVENOL (LIDOCAINE HYDROCHLORIDE, TRIBENOSIDE) [Concomitant]
  3. FUROSEMIDE [Concomitant]
  4. TORSEMIDE [Suspect]
     Indication: CARDIAC FAILURE
     Dosage: 100-150 MG/D, ORAL
     Route: 048
     Dates: start: 20110809
  5. DIGOXIN [Suspect]
     Indication: CARDIAC FAILURE
     Dosage: WITH INCREASING DOSE 0.125 MG DAILY (0.125 MG, 1 IN 1 D),  ORAL
     Route: 048
     Dates: start: 20110810
  6. PREDNISONE [Suspect]
     Indication: CHRONIC OBSTRUCTIVE PULMONARY DISEASE
     Dosage: 10 MG (10 MG, 1 IN 1 D), ORAL
     Route: 048
  7. KALIUM HAUSEMANN EFFERVETTES (POTASSIUM BICARBONATE, POTASSIUM CITRATE [Suspect]
     Indication: HYPOKALAEMIA
     Dosage: 1 DOSAGE FORMS (1 DOSAGE FORMS, 1 IN 1 D), ORAL
     Route: 048
     Dates: end: 20110809
  8. JANUVIA [Concomitant]
  9. PARAGOL (PHENOLPHTHALEIN, PARRAFIN, LIQUID) [Concomitant]
  10. ACETAMINOPHEN [Concomitant]
  11. KONAKION [Suspect]
     Indication: INTERNATIONAL NORMALISED RATIO ABNORMAL
     Dosage: 0.5 MG (0.5 MG, 1 IN 1 AS REQUIRED), ORAL 5 MG (5 MG, 1 IN 1 AS REQUIRED), INTRAVENOUS (NOT OTHERWIS
     Route: 042
     Dates: start: 20110902, end: 20110909
  12. CONCOR (BISOPROLOL FUARATE) [Concomitant]
  13. SEROQUEL [Suspect]
     Dosage: WITH INCREASING DOSE TO 35 MG DAILY (25 MG, 1 IN 1 D), ORAL
     Route: 048
     Dates: start: 20110831
  14. QUETIAPINE FUMARATE [Suspect]
     Dosage: 10 MG (5 MG, IN  THE EVENING), ORAL
     Route: 048
     Dates: end: 20110831
  15. RAMIPRIL [Concomitant]
  16. NOVALGIN (METAMIZOLE SODIUM) [Concomitant]
  17. MARCUMAR [Suspect]
     Indication: ATRIAL FIBRILLATION
     Dosage: 1 DOSAGE FORMS (1 DOSAGE FORMS, 1 IN 1 AS REQUIRED) (1 IN 1 AS REQUIRED), ORAL
     Route: 048
     Dates: start: 20110501, end: 20110901
  18. MARCUMAR [Suspect]
     Indication: ATRIAL FLUTTER
     Dosage: 1 DOSAGE FORMS (1 DOSAGE FORMS, 1 IN 1 AS REQUIRED) (1 IN 1 AS REQUIRED), ORAL
     Route: 048
     Dates: start: 20110501, end: 20110901
  19. HALDOL [Concomitant]

REACTIONS (19)
  - ANAEMIA [None]
  - DELIRIUM [None]
  - HYPOKALAEMIA [None]
  - RECTAL HAEMORRHAGE [None]
  - LUNG INFECTION [None]
  - HAEMOGLOBIN DECREASED [None]
  - HYPOALBUMINAEMIA [None]
  - THROMBOCYTOPENIA [None]
  - MALNUTRITION [None]
  - GASTRIC HAEMORRHAGE [None]
  - MELAENA [None]
  - INTERNATIONAL NORMALISED RATIO ABNORMAL [None]
  - INTERNATIONAL NORMALISED RATIO INCREASED [None]
  - HAEMATEMESIS [None]
  - GASTRITIS EROSIVE [None]
  - GASTRITIS [None]
  - HYPERBILIRUBINAEMIA [None]
  - CHOLESTASIS [None]
  - CARDIOVASCULAR DISORDER [None]
